FAERS Safety Report 6982758-0 (Version None)
Quarter: 2010Q3

REPORT INFORMATION
  Report Type: 
  Country: None (occurrence: None)
  Receive Date: 20100914
  Receipt Date: 20100315
  Transmission Date: 20110219
  Serious: No
  Sender: FDA-Public Use
  Company Number: US-PFIZER INC-2010033596

PATIENT
  Sex: Female
  Weight: 55.329 kg

DRUGS (5)
  1. LYRICA [Suspect]
     Indication: FIBROMYALGIA
     Dosage: 50 MG, 2X/DAY
     Dates: start: 20100201
  2. XANAX [Concomitant]
     Dosage: UNK, AS NEEDED
  3. VITAMIN B-12 [Concomitant]
     Indication: PERNICIOUS ANAEMIA
     Dosage: UNK, MONTHLY
  4. VITAMIN D [Concomitant]
     Dosage: UNK, WEEKLY
  5. CALCIUM [Concomitant]
     Dosage: UNK

REACTIONS (6)
  - CONSTIPATION [None]
  - DIZZINESS [None]
  - FLATULENCE [None]
  - HOT FLUSH [None]
  - HYPERHIDROSIS [None]
  - OEDEMA PERIPHERAL [None]
